FAERS Safety Report 9830998 (Version 2)
Quarter: 2014Q1

REPORT INFORMATION
  Report Type: Spontaneous
  Country: US (occurrence: US)
  Receive Date: 20140120
  Receipt Date: 20140318
  Transmission Date: 20141002
  Serious: Yes (Other)
  Sender: FDA-Public Use
  Company Number: PHEH2014US001425

PATIENT
  Age: 66 Year
  Sex: Male
  Weight: 80.27 kg

DRUGS (5)
  1. GILENYA [Suspect]
     Indication: MULTIPLE SCLEROSIS
     Route: 048
     Dates: start: 201111, end: 201401
  2. CRESTOR [Concomitant]
  3. DIOVAN [Concomitant]
  4. NORVASC [Concomitant]
  5. ASA [Concomitant]

REACTIONS (3)
  - Malignant melanoma [Not Recovered/Not Resolved]
  - Squamous cell carcinoma [Not Recovered/Not Resolved]
  - Condition aggravated [Not Recovered/Not Resolved]
